FAERS Safety Report 9519578 (Version 1)
Quarter: 2013Q3

REPORT INFORMATION
  Report Type: Spontaneous
  Country: BR (occurrence: BR)
  Receive Date: 20130912
  Receipt Date: 20130912
  Transmission Date: 20140515
  Serious: Yes (Hospitalization, Other)
  Sender: FDA-Public Use
  Company Number: BR-ASTRAZENECA-2013SE67531

PATIENT
  Age: 49 Year
  Sex: Female
  Weight: 78 kg

DRUGS (2)
  1. OMEPRAZOLE [Suspect]
     Indication: GASTROOESOPHAGEAL REFLUX DISEASE
     Route: 048
     Dates: start: 2003
  2. SELOZOK [Suspect]
     Indication: ARRHYTHMIA
     Route: 048
     Dates: start: 201304

REACTIONS (4)
  - Ischaemia [Recovered/Resolved]
  - Arrhythmia [Unknown]
  - Cold sweat [Not Recovered/Not Resolved]
  - Drug administration error [Recovered/Resolved]
